FAERS Safety Report 5973626-1 (Version None)
Quarter: 2008Q4

REPORT INFORMATION
  Report Type: 
  Country: None (occurrence: None)
  Receive Date: 20081201
  Receipt Date: 20081124
  Transmission Date: 20090506
  Serious: Yes (Hospitalization)
  Sender: FDA-Public Use
  Company Number: CA-ELI_LILLY_AND_COMPANY-CA200804001493

PATIENT
  Age: 65 Year
  Sex: Female

DRUGS (14)
  1. FORTEO [Suspect]
     Indication: OSTEOPOROSIS
     Dosage: 20 UG, DAILY (1/D)
     Route: 058
     Dates: start: 20080304, end: 20080609
  2. FORTEO [Suspect]
     Dosage: 20 UG, QOD
     Route: 058
     Dates: start: 20080707, end: 20080801
  3. FORTEO [Suspect]
     Dosage: 20 UG, DAILY (1/D)
     Route: 058
     Dates: start: 20081020, end: 20081110
  4. DIOVAN [Concomitant]
  5. MULTI-VITAMIN [Concomitant]
  6. ASPIRIN [Concomitant]
  7. TUMS [Concomitant]
  8. IRON [Concomitant]
  9. ADVAIR HFA [Concomitant]
  10. VENTOLIN                                /SCH/ [Concomitant]
  11. SPIRIVA [Concomitant]
  12. OXYGEN [Concomitant]
  13. VITAMIN D [Concomitant]
  14. CRESTOR [Concomitant]

REACTIONS (3)
  - CHRONIC OBSTRUCTIVE PULMONARY DISEASE [None]
  - DYSPNOEA [None]
  - LUNG DISORDER [None]
